FAERS Safety Report 6644999-1 (Version None)
Quarter: 2010Q1

REPORT INFORMATION
  Report Type: 
  Country: None (occurrence: None)
  Receive Date: 20100322
  Receipt Date: 20100311
  Transmission Date: 20100710
  Serious: Yes (Other)
  Sender: FDA-Public Use
  Company Number: PHEH2010US02815

PATIENT
  Sex: Female
  Weight: 66.667 kg

DRUGS (1)
  1. GLEEVEC [Suspect]
     Indication: CHRONIC MYELOID LEUKAEMIA
     Dosage: UNK, UNK

REACTIONS (3)
  - BREAST CANCER [None]
  - NEOPLASM MALIGNANT [None]
  - SURGERY [None]
